FAERS Safety Report 9154866 (Version 1)
Quarter: 2013Q1

REPORT INFORMATION
  Report Type: Spontaneous
  Country: US (occurrence: US)
  Receive Date: 20130311
  Receipt Date: 20130311
  Transmission Date: 20140127
  Serious: No
  Sender: FDA-Public Use
  Company Number: US-ABBOTT-12P-163-1004863-00

PATIENT
  Sex: Female
  Weight: 59.02 kg

DRUGS (3)
  1. LUPRON DEPOT [Suspect]
     Indication: ENDOMETRIOSIS
  2. RITALIN [Concomitant]
     Indication: ANTIDEPRESSANT THERAPY
  3. RITALIN [Concomitant]
     Indication: ATTENTION DEFICIT/HYPERACTIVITY DISORDER

REACTIONS (6)
  - Apathy [Unknown]
  - Hot flush [Unknown]
  - Headache [Unknown]
  - Vaginal haemorrhage [Unknown]
  - Fatigue [Unknown]
  - Depression [Unknown]
